FAERS Safety Report 23077944 (Version 1)
Quarter: 2023Q4

REPORT INFORMATION
  Report Type: Spontaneous
  Country: US (occurrence: US)
  Receive Date: 20231018
  Receipt Date: 20231018
  Transmission Date: 20240110
  Serious: Yes (Other)
  Sender: FDA-Public Use
  Company Number: US-LUPIN PHARMACEUTICALS INC.-2023-08840

PATIENT
  Age: 95 Year
  Sex: Female

DRUGS (2)
  1. NITROFURANTOIN [Suspect]
     Active Substance: NITROFURANTOIN
     Indication: Urinary tract infection
     Dosage: UNK UNK, QD (FOR THE PAST 6 MONTHS, SHE HAD BEEN TAKING NITROFURANTOIN DAILY)
     Route: 065
  2. NITROFURANTOIN [Suspect]
     Active Substance: NITROFURANTOIN
     Indication: Prophylaxis urinary tract infection

REACTIONS (1)
  - Pulmonary toxicity [Recovering/Resolving]
